FAERS Safety Report 13212163 (Version 1)
Quarter: 2017Q1

REPORT INFORMATION
  Report Type: Spontaneous
  Country: US (occurrence: US)
  Receive Date: 20170209
  Receipt Date: 20170209
  Transmission Date: 20170428
  Serious: No
  Sender: FDA-Public Use
  Company Number: US-ALLERGAN-1659126US

PATIENT
  Age: 52 Year
  Sex: Female
  Weight: 61.22 kg

DRUGS (7)
  1. BOTOX [Suspect]
     Active Substance: ONABOTULINUMTOXINA
     Indication: MIGRAINE
     Dosage: 200 UNITS, SINGLE
     Route: 030
     Dates: start: 201511, end: 201511
  2. NUROTIN [Concomitant]
     Dosage: 100 MG, QAM
     Dates: start: 2012
  3. PROGESTERONE. [Concomitant]
     Active Substance: PROGESTERONE
     Dosage: UNK
     Route: 061
  4. BOTOX [Suspect]
     Active Substance: ONABOTULINUMTOXINA
     Dosage: 200 UNITS, SINGLE
     Route: 030
     Dates: start: 201602, end: 201602
  5. BOTOX [Suspect]
     Active Substance: ONABOTULINUMTOXINA
     Dosage: 200 UNITS, SINGLE
     Route: 030
     Dates: start: 201605, end: 201605
  6. NUROTIN [Concomitant]
     Indication: NERVE INJURY
     Dosage: 300 MG, QPM
     Route: 048
     Dates: start: 2010
  7. ESTRADIOL. [Concomitant]
     Active Substance: ESTRADIOL
     Indication: HYSTERECTOMY
     Dosage: 0.5 MG, QD
     Dates: start: 2002

REACTIONS (7)
  - Neck pain [Recovered/Resolved]
  - Off label use [Unknown]
  - Muscular weakness [Recovered/Resolved]
  - Head discomfort [Not Recovered/Not Resolved]
  - Headache [Recovered/Resolved]
  - Drug ineffective [Unknown]
  - Influenza like illness [Recovered/Resolved]

NARRATIVE: CASE EVENT DATE: 201605
